FAERS Safety Report 9068604 (Version 1)
Quarter: 2013Q1

REPORT INFORMATION
  Report Type: Spontaneous
  Country: US (occurrence: None)
  Receive Date: 20130212
  Receipt Date: 20130212
  Transmission Date: 20140127
  Serious: Yes (Other)
  Sender: FDA-Public Use
  Company Number: None

PATIENT
  Age: 38 Year
  Sex: Male

DRUGS (3)
  1. WELLBUTRIN XL [Suspect]
     Route: 048
  2. PAXIL [Suspect]
     Route: 048
  3. LAMICTAL [Concomitant]

REACTIONS (1)
  - Amnesia [None]
